FAERS Safety Report 8104005-9 (Version None)
Quarter: 2012Q1

REPORT INFORMATION
  Report Type: 
  Country: None (occurrence: None)
  Receive Date: 20120201
  Receipt Date: 20120124
  Transmission Date: 20120608
  Serious: Yes (Hospitalization, Other)
  Sender: FDA-Public Use
  Company Number: US-BAYER-201042024NA

PATIENT
  Age: 26 Year
  Sex: Female
  Weight: 61.678 kg

DRUGS (5)
  1. YASMIN [Suspect]
     Indication: ORAL CONTRACEPTION
     Dosage: UNK UNK, UNK
     Route: 048
     Dates: start: 20030101, end: 20060301
  2. SUDAFED COLD + ALLERGY [Concomitant]
     Indication: SEASONAL ALLERGY
  3. MULTI-VITAMINS [Concomitant]
  4. ASTELIN [Concomitant]
     Indication: SEASONAL ALLERGY
  5. NASONEX [Concomitant]
     Indication: SEASONAL ALLERGY

REACTIONS (3)
  - PULMONARY EMBOLISM [None]
  - PLEURITIC PAIN [None]
  - INJURY [None]
